FAERS Safety Report 9711073 (Version 1)
Quarter: 2013Q4

REPORT INFORMATION
  Report Type: Spontaneous
  Country: US (occurrence: US)
  Receive Date: 20131126
  Receipt Date: 20131126
  Transmission Date: 20140711
  Serious: No
  Sender: FDA-Public Use
  Company Number: US-BRISTOL-MYERS SQUIBB COMPANY-19047398

PATIENT
  Age: 48 Year
  Sex: Female

DRUGS (3)
  1. BYDUREON [Suspect]
     Dosage: CHANGED TO EVERY OTHER WEEK
  2. INSULIN [Concomitant]
  3. AMARYL [Concomitant]

REACTIONS (1)
  - Constipation [Unknown]
